FAERS Safety Report 23104347 (Version 1)
Quarter: 2023Q4

REPORT INFORMATION
  Report Type: Spontaneous
  Country: ES (occurrence: None)
  Receive Date: 20231024
  Receipt Date: 20231024
  Transmission Date: 20240110
  Serious: Yes (Life-Threatening, Disabling)
  Sender: FDA-Public Use
  Company Number: None

PATIENT
  Age: 61 Year
  Sex: Male
  Weight: 108 kg

DRUGS (1)
  1. LEVOFLOXACIN [Suspect]
     Active Substance: LEVOFLOXACIN
     Indication: Pneumonia
     Dosage: FREQUENCY : DAILY;?
     Route: 042
     Dates: start: 20220406, end: 20220413

REACTIONS (22)
  - Tendon pain [None]
  - Myalgia [None]
  - Collagen disorder [None]
  - Bone pain [None]
  - Hypoaesthesia [None]
  - Burning sensation [None]
  - Joint noise [None]
  - Ulnar neuritis [None]
  - Paraesthesia [None]
  - Joint injury [None]
  - Neuralgia [None]
  - Arthralgia [None]
  - Ophthalmic migraine [None]
  - Vitreous floaters [None]
  - Soft tissue mass [None]
  - Condition aggravated [None]
  - Intracranial pressure increased [None]
  - Vascular pain [None]
  - Atrial flutter [None]
  - Aortic dissection [None]
  - Electric shock sensation [None]
  - Pulmonary oedema [None]

NARRATIVE: CASE EVENT DATE: 20220919
